FAERS Safety Report 9338688 (Version 2)
Quarter: 2013Q3

REPORT INFORMATION
  Report Type: Spontaneous
  Country: IT (occurrence: IT)
  Receive Date: 20130610
  Receipt Date: 20130705
  Transmission Date: 20140515
  Serious: Yes (Hospitalization)
  Sender: FDA-Public Use
  Company Number: IT-ROCHE-1234218

PATIENT
  Age: 86 Year
  Sex: Female

DRUGS (4)
  1. ROCEPHIN [Suspect]
     Indication: SINUSITIS
     Route: 042
     Dates: start: 20130317, end: 20130321
  2. ABELCET [Suspect]
     Indication: SINUSITIS
     Route: 042
     Dates: start: 20130318, end: 20130328
  3. TIKLID [Concomitant]
     Route: 065
     Dates: start: 20130317, end: 20130327
  4. LANSOX [Concomitant]
     Route: 065
     Dates: start: 20130317, end: 20130331

REACTIONS (1)
  - Hepatic enzyme increased [Recovering/Resolving]
